FAERS Safety Report 8150562-6 (Version None)
Quarter: 2012Q1

REPORT INFORMATION
  Report Type: 
  Country: None (occurrence: None)
  Receive Date: 20120220
  Receipt Date: 20120215
  Transmission Date: 20120608
  Serious: Yes (Death)
  Sender: FDA-Public Use
  Company Number: US-ASTELLAS-2012US001807

PATIENT
  Sex: Female

DRUGS (1)
  1. ERLOTINIB HYDROCHLORIDE [Suspect]
     Indication: BRONCHIAL CARCINOMA
     Dosage: 150 MG, UNKNOWN/D
     Route: 048
     Dates: start: 20120118, end: 20120206

REACTIONS (1)
  - DEATH [None]
